FAERS Safety Report 15711257 (Version 1)
Quarter: 2018Q4

REPORT INFORMATION
  Report Type: Spontaneous
  Country: ES (occurrence: ES)
  Receive Date: 20181211
  Receipt Date: 20181211
  Transmission Date: 20190205
  Serious: Yes (Congenital Anomaly)
  Sender: FDA-Public Use
  Company Number: ES-OTSUKA-2018_038108

PATIENT

DRUGS (3)
  1. LANTUS [Concomitant]
     Active Substance: INSULIN GLARGINE
     Indication: GESTATIONAL DIABETES
     Dosage: 22 IU, QD
     Route: 064
  2. ABILIFY MAINTENA [Suspect]
     Active Substance: ARIPIPRAZOLE
     Indication: SCHIZOAFFECTIVE DISORDER
     Dosage: 400 MG, EVERY FOUR WEEKS
     Route: 064
     Dates: start: 2017
  3. FERPLEX [Concomitant]
     Indication: IRON DEFICIENCY
     Dosage: FERPLEX 40 MG, 1/DAY
     Route: 064

REACTIONS (2)
  - Atrioventricular septal defect [Unknown]
  - Trisomy 21 [Unknown]

NARRATIVE: CASE EVENT DATE: 20180714
